FAERS Safety Report 8853941 (Version 2)
Quarter: 2012Q4

REPORT INFORMATION
  Report Type: 
  Country: JP (occurrence: JP)
  Receive Date: 20121022
  Receipt Date: 20121030
  Transmission Date: 20130627
  Serious: Yes (Hospitalization)
  Sender: FDA-Public Use
  Company Number: PHHY2012JP093766

PATIENT
  Sex: Male

DRUGS (2)
  1. ZADITEN [Suspect]
     Indication: SEASONAL ALLERGY
     Route: 048
  2. DIOVAN [Suspect]
     Indication: HYPERTENSION
     Dosage: UNK ug/ml, UNK
     Route: 048

REACTIONS (12)
  - Drug-induced liver injury [Recovering/Resolving]
  - Chronic hepatitis [Unknown]
  - Hepatic steatosis [Unknown]
  - Malaise [Unknown]
  - Chromaturia [Unknown]
  - Ocular icterus [Unknown]
  - Hepatic function abnormal [Recovering/Resolving]
  - Lymphocyte stimulation test positive [Unknown]
  - Cholangitis sclerosing [Unknown]
  - Hepatomegaly [Unknown]
  - Biliary dilatation [Unknown]
  - Gallbladder disorder [Recovering/Resolving]
